FAERS Safety Report 11625686 (Version 7)
Quarter: 2015Q4

REPORT INFORMATION
  Report Type: Spontaneous
  Country: US (occurrence: US)
  Receive Date: 20151013
  Receipt Date: 20151214
  Transmission Date: 20160304
  Serious: No
  Sender: FDA-Public Use
  Company Number: CHPA2015US012048

PATIENT
  Age: 69 Year
  Sex: Female

DRUGS (3)
  1. VOLTAREN [Suspect]
     Active Substance: DICLOFENAC SODIUM
     Indication: BLISTER
     Dosage: UNK, TID
     Route: 061
  2. VOLTAREN [Suspect]
     Active Substance: DICLOFENAC SODIUM
     Indication: VEIN DISORDER
     Dosage: 4 G, BID
     Route: 061
     Dates: start: 201509
  3. VOLTAREN [Suspect]
     Active Substance: DICLOFENAC SODIUM
     Indication: NEURALGIA
     Dosage: ? OF 2 G, QD
     Route: 061

REACTIONS (13)
  - Pain in extremity [Recovered/Resolved]
  - Arthropathy [Recovering/Resolving]
  - Blister [Not Recovered/Not Resolved]
  - Blister rupture [Not Recovered/Not Resolved]
  - Application site erythema [Not Recovered/Not Resolved]
  - Therapeutic response unexpected [Unknown]
  - Infection [Not Recovered/Not Resolved]
  - Application site pain [Not Recovered/Not Resolved]
  - Arthralgia [Recovering/Resolving]
  - Product use issue [Unknown]
  - Incorrect dose administered [Unknown]
  - Urticaria [Not Recovered/Not Resolved]
  - Inappropriate schedule of drug administration [Unknown]

NARRATIVE: CASE EVENT DATE: 2015
